FAERS Safety Report 23284308 (Version 2)
Quarter: 2024Q1

REPORT INFORMATION
  Report Type: Report from Study
  Country: CL (occurrence: CL)
  Receive Date: 20231211
  Receipt Date: 20240102
  Transmission Date: 20240410
  Serious: Yes (Other)
  Sender: FDA-Public Use
  Company Number: CL-002147023-NVSC2023CL027121

PATIENT
  Age: 41 Year
  Sex: Female

DRUGS (4)
  1. KESIMPTA [Suspect]
     Active Substance: OFATUMUMAB
     Indication: Relapsing-remitting multiple sclerosis
     Dosage: 20 MG, QMO
     Route: 058
     Dates: start: 20220925
  2. KESIMPTA [Suspect]
     Active Substance: OFATUMUMAB
     Dosage: UNK
     Route: 065
     Dates: start: 20230201
  3. KESIMPTA [Suspect]
     Active Substance: OFATUMUMAB
     Dosage: UNK
     Route: 065
     Dates: start: 20230816
  4. KESIMPTA [Suspect]
     Active Substance: OFATUMUMAB
     Dosage: 20 MG, QMO
     Route: 058
     Dates: start: 20230920

REACTIONS (14)
  - Decreased immune responsiveness [Recovered/Resolved]
  - Confusional state [Unknown]
  - Heat exhaustion [Unknown]
  - Musculoskeletal stiffness [Unknown]
  - Illness [Unknown]
  - Gastroenteritis viral [Unknown]
  - Device defective [Unknown]
  - Back pain [Unknown]
  - Injection site discharge [Unknown]
  - Adenoviral upper respiratory infection [Unknown]
  - Malaise [Unknown]
  - Discomfort [Unknown]
  - Nasopharyngitis [Recovered/Resolved]
  - Incorrect dose administered by device [Unknown]
